FAERS Safety Report 5326872-4 (Version None)
Quarter: 2007Q2

REPORT INFORMATION
  Report Type: 
  Country: None (occurrence: None)
  Receive Date: 20070511
  Receipt Date: 20070424
  Transmission Date: 20071010
  Serious: Yes (Other)
  Sender: FDA-Public Use
  Company Number: ENT-2007-0046

PATIENT
  Sex: Male

DRUGS (2)
  1. COMTAN [Suspect]
     Dosage: 200 MG, 4 TABLETS A DAY, ORAL
     Route: 048
     Dates: start: 20070406
  2. MADOPAR [Concomitant]

REACTIONS (1)
  - TREMOR [None]
